FAERS Safety Report 8621905-1 (Version None)
Quarter: 2012Q3

REPORT INFORMATION
  Report Type: 
  Country: None (occurrence: None)
  Receive Date: 20120822
  Receipt Date: 20120822
  Transmission Date: 20120928
  Serious: Yes (Disabling, Congenital Anomaly, Other)
  Sender: FDA-Public Use
  Company Number: None

PATIENT
  Sex: Female
  Weight: 6.75 kg

DRUGS (1)
  1. RITODRINE HCL [Suspect]
     Indication: PREMATURE LABOUR
     Dosage: IV, SWITCHING TO 1 TAB, 3 TIMES/DAY, PO
     Route: 048
     Dates: start: 19881030, end: 19881128

REACTIONS (9)
  - SLEEP TERROR [None]
  - SLEEP DISORDER [None]
  - COORDINATION ABNORMAL [None]
  - DEPRESSION [None]
  - ALTERED VISUAL DEPTH PERCEPTION [None]
  - FOETAL EXPOSURE DURING PREGNANCY [None]
  - ATTENTION DEFICIT/HYPERACTIVITY DISORDER [None]
  - BIPOLAR DISORDER [None]
  - EPILEPSY [None]
